FAERS Safety Report 15150001 (Version 1)
Quarter: 2018Q3

REPORT INFORMATION
  Report Type: Spontaneous
  Country: FR (occurrence: FR)
  Receive Date: 20180716
  Receipt Date: 20180716
  Transmission Date: 20181010
  Serious: Yes (Death, Hospitalization)
  Sender: FDA-Public Use
  Company Number: FR-MYLANLABS-2018M1050880

PATIENT
  Age: 60 Year
  Sex: Female

DRUGS (1)
  1. PALIPERIDONE. [Suspect]
     Active Substance: PALIPERIDONE
     Indication: PRODUCT USED FOR UNKNOWN INDICATION
     Dosage: ONCE IN A MONTH
     Route: 050
     Dates: start: 201706

REACTIONS (8)
  - Brain oedema [Fatal]
  - Cerebral ischaemia [Fatal]
  - Brain death [Fatal]
  - Loss of consciousness [Fatal]
  - Hyperglycaemia [Fatal]
  - Hyponatraemia [Fatal]
  - Fall [Fatal]
  - Seizure [Fatal]

NARRATIVE: CASE EVENT DATE: 20170906
